FAERS Safety Report 23061546 (Version 3)
Quarter: 2024Q1

REPORT INFORMATION
  Report Type: Spontaneous
  Country: SE (occurrence: SE)
  Receive Date: 20231013
  Receipt Date: 20240208
  Transmission Date: 20240409
  Serious: Yes (Other)
  Sender: FDA-Public Use
  Company Number: SE-GALDERMA-SE2023011027

PATIENT

DRUGS (11)
  1. SOOLANTRA [Suspect]
     Active Substance: IVERMECTIN
     Indication: Rosacea
     Dosage: 1 DOSAGE FORM, QD, APPLIED ON FACE IN THE EVENING
     Dates: start: 20230529, end: 20230720
  2. SOOLANTRA [Suspect]
     Active Substance: IVERMECTIN
     Indication: Transient acantholytic dermatosis
  3. LYMELYSAL [Concomitant]
     Indication: Rosacea
     Dosage: 1 DOSAGE FORM, BID, 1 CAPSULE IN THE MORNINGS AND EVENINGS
     Dates: start: 20230616, end: 20230713
  4. LYMELYSAL [Concomitant]
     Indication: Transient acantholytic dermatosis
  5. LYMECYCLINE ACTAVIS [Concomitant]
     Indication: Rosacea
     Dosage: 1 DOSAGE FORM, BID, 1 DOSAGE FORM, BID, 1 CAPSULE IN THE MORNINGS AND EVENINGS
     Dates: start: 20230616, end: 20230713
  6. LYMECYCLINE ACTAVIS [Concomitant]
     Indication: Transient acantholytic dermatosis
  7. CLOPIDOGREL [Concomitant]
     Active Substance: CLOPIDOGREL BISULFATE
     Indication: Cardiac disorder
     Dosage: 75 MILLIGRAM
     Route: 065
     Dates: start: 2017
  8. ATORVASTATIN [Concomitant]
     Active Substance: ATORVASTATIN
     Indication: Blood cholesterol increased
     Dosage: 10 MILLIGRAM
     Route: 065
  9. NEOSTRATA [SALICYLIC ACID] [Concomitant]
     Indication: Product used for unknown indication
  10. POLYETHYLENE GLYCOL 3350\POTASSIUM CHLORIDE\SODIUM BICARBONATE\SODIUM [Concomitant]
     Active Substance: POLYETHYLENE GLYCOL 3350\POTASSIUM CHLORIDE\SODIUM BICARBONATE\SODIUM CHLORIDE
     Indication: Product used for unknown indication
     Dosage: AS NECESSARY
     Route: 065
  11. DESLORATADINE [Concomitant]
     Active Substance: DESLORATADINE
     Indication: Product used for unknown indication
     Dosage: AS NECESSARY
     Route: 065

REACTIONS (14)
  - Photosensitivity reaction [Not Recovered/Not Resolved]
  - Photophobia [Not Recovered/Not Resolved]
  - Feeling hot [Unknown]
  - Ocular hyperaemia [Recovering/Resolving]
  - Contusion [Recovering/Resolving]
  - Epistaxis [Unknown]
  - Condition aggravated [Unknown]
  - Weight decreased [Not Recovered/Not Resolved]
  - Sensitive skin [Unknown]
  - Pain of skin [Recovered/Resolved]
  - Application site erythema [Not Recovered/Not Resolved]
  - Application site pain [Not Recovered/Not Resolved]
  - Rosacea [Unknown]
  - Intentional product use issue [Recovered/Resolved]

NARRATIVE: CASE EVENT DATE: 20230101
